FAERS Safety Report 5322076-X (Version None)
Quarter: 2007Q2

REPORT INFORMATION
  Report Type: 
  Country: None (occurrence: None)
  Receive Date: 20070511
  Receipt Date: 20070427
  Transmission Date: 20071010
  Serious: Yes (Other)
  Sender: FDA-Public Use
  Company Number: FR-BAYER-200710306BFR

PATIENT

DRUGS (1)
  1. IZILOX [Suspect]
     Indication: UNEVALUABLE EVENT
     Route: 048

REACTIONS (1)
  - SKIN DISORDER [None]
